FAERS Safety Report 20168270 (Version 2)
Quarter: 2022Q1

REPORT INFORMATION
  Report Type: Spontaneous
  Country: DE (occurrence: DE)
  Receive Date: 20211210
  Receipt Date: 20220321
  Transmission Date: 20220423
  Serious: Yes (Death, Other)
  Sender: FDA-Public Use
  Company Number: DE-009507513-2111DEU008590

PATIENT
  Age: 62 Year
  Sex: Female

DRUGS (16)
  1. DOCETAXEL [Suspect]
     Active Substance: DOCETAXEL
     Indication: Non-small cell lung cancer
     Dosage: 75 MG/M2, EVERY 3 WEEK (D1, Q21D )
     Route: 042
     Dates: start: 202003, end: 202007
  2. DOCETAXEL [Suspect]
     Active Substance: DOCETAXEL
     Indication: Lung adenocarcinoma
  3. PACLITAXEL [Suspect]
     Active Substance: PACLITAXEL
     Indication: Non-small cell lung cancer
     Dosage: 200 MG/M2, 3 WEEK, D1, Q21D
     Route: 042
     Dates: start: 202101, end: 202104
  4. PACLITAXEL [Suspect]
     Active Substance: PACLITAXEL
     Indication: Lung adenocarcinoma
  5. PEMBROLIZUMAB [Suspect]
     Active Substance: PEMBROLIZUMAB
     Indication: Non-small cell lung cancer
     Dosage: 200 MILLIGRAM (D1, FIRST LINE, 4 CYCLES)
     Route: 042
     Dates: start: 201902, end: 201905
  6. PEMBROLIZUMAB [Suspect]
     Active Substance: PEMBROLIZUMAB
     Indication: Lung adenocarcinoma
     Dosage: UNK (MAINTENANCE, UNK, 12 CYCLES)
     Route: 065
     Dates: start: 201906, end: 202002
  7. CARBOPLATIN [Suspect]
     Active Substance: CARBOPLATIN
     Indication: Non-small cell lung cancer
     Dosage: UNK (FIRST LINE, 4 CYCLES, (AUC 5MG/ML X MIN), D1
     Route: 065
     Dates: start: 201902, end: 201905
  8. CARBOPLATIN [Suspect]
     Active Substance: CARBOPLATIN
     Dosage: 1 DOSAGE FORM, 3 WEEK (AUC 6MG/ML X MIN, Q21D)
     Route: 042
     Dates: start: 202101, end: 202104
  9. NINTEDANIB [Suspect]
     Active Substance: NINTEDANIB
     Indication: Non-small cell lung cancer
     Dosage: 400 MILLIGRAM, ONCE A DAY (2ND LINE, 4 CYCLES, 200 MILLIGRAM, TWICE A DAY, D2-21)
     Route: 042
     Dates: start: 202003, end: 202007
  10. NINTEDANIB [Suspect]
     Active Substance: NINTEDANIB
     Indication: Lung adenocarcinoma
     Dosage: 400 MILLIGRAM, ONCE A DAY (200, TWICE DAILY, MAINTENANCE)
     Route: 065
     Dates: start: 202007, end: 202012
  11. PEMETREXED [Suspect]
     Active Substance: PEMETREXED
     Indication: Non-small cell lung cancer
     Dosage: 500 MG/M2 (4 CYCLES, 500 MG/M2, D1)
     Route: 042
     Dates: start: 201902, end: 201905
  12. PEMETREXED [Suspect]
     Active Substance: PEMETREXED
     Indication: Lung adenocarcinoma
     Dosage: UNK (MAINTENANCE, UNK, 12 CYCLES)
     Route: 065
     Dates: start: 201906, end: 202002
  13. BEVACIZUMAB [Suspect]
     Active Substance: BEVACIZUMAB
     Indication: Non-small cell lung cancer
     Dosage: 15 MILLIGRAM/KILOGRAM, 3 WEEK (D1, Q21D)
     Route: 042
     Dates: start: 202101, end: 202103
  14. BEVACIZUMAB [Suspect]
     Active Substance: BEVACIZUMAB
     Indication: Lung adenocarcinoma
     Dosage: UNK, CYCLICAL
     Route: 042
     Dates: start: 202105, end: 202108
  15. ATEZOLIZUMAB [Suspect]
     Active Substance: ATEZOLIZUMAB
     Indication: Lung adenocarcinoma
     Dosage: UNK, CYCLICAL
     Route: 065
     Dates: start: 202105, end: 202108
  16. ATEZOLIZUMAB [Suspect]
     Active Substance: ATEZOLIZUMAB
     Indication: Non-small cell lung cancer
     Dosage: 1200 MILLIGRAM, 3 WEEK, D1, Q21D
     Route: 042
     Dates: start: 202101, end: 202104

REACTIONS (7)
  - Atypical pneumonia [Fatal]
  - Malignant neoplasm progression [Unknown]
  - Diarrhoea [Recovering/Resolving]
  - Seizure [Unknown]
  - Disturbance in attention [Unknown]
  - Asthenia [Unknown]
  - General physical health deterioration [Unknown]

NARRATIVE: CASE EVENT DATE: 20200301
